FAERS Safety Report 8506851-6 (Version None)
Quarter: 2012Q3

REPORT INFORMATION
  Report Type: 
  Country: None (occurrence: None)
  Receive Date: 20120712
  Receipt Date: 20120709
  Transmission Date: 20120928
  Serious: No
  Sender: FDA-Public Use
  Company Number: US-PFIZER INC-2012080242

PATIENT
  Sex: Female
  Weight: 81.633 kg

DRUGS (6)
  1. LEVOTHYROXINE [Concomitant]
     Dosage: UNK, ONCE A DAY
  2. DILANTIN [Suspect]
     Dosage: 300 MG, UNK
     Route: 048
  3. DILANTIN [Suspect]
     Indication: CONVULSION
     Dosage: 300MG (3 OF 100MG) ONCE A DAY
     Route: 048
     Dates: start: 20091001
  4. DILANTIN [Suspect]
     Dosage: UNK
     Route: 048
  5. SYNTHROID [Concomitant]
     Indication: THYROID DISORDER
     Dosage: UNK
  6. DILANTIN [Suspect]
     Dosage: 400 MG, UNK
     Route: 048

REACTIONS (8)
  - VISUAL IMPAIRMENT [None]
  - HYPERTENSION [None]
  - HALLUCINATION, VISUAL [None]
  - FEELING ABNORMAL [None]
  - VERTIGO [None]
  - BALANCE DISORDER [None]
  - DRUG LEVEL DECREASED [None]
  - HEART RATE INCREASED [None]
